FAERS Safety Report 6810126-0 (Version None)
Quarter: 2010Q2

REPORT INFORMATION
  Report Type: 
  Country: None (occurrence: None)
  Receive Date: 20100630
  Receipt Date: 20100625
  Transmission Date: 20101027
  Serious: Yes (Other)
  Sender: FDA-Public Use
  Company Number: US-ROCHE-712054

PATIENT
  Sex: Female
  Weight: 60.5 kg

DRUGS (8)
  1. CELLCEPT [Suspect]
     Indication: SJOGREN'S SYNDROME
     Route: 048
     Dates: start: 20100524, end: 20100530
  2. CELLCEPT [Suspect]
     Route: 048
     Dates: start: 20100531, end: 20100606
  3. LEVOTHYROXINE SODIUM [Concomitant]
  4. LEXAPRO [Concomitant]
  5. AMPHETAMINE SULFATE [Concomitant]
  6. PROTONIX [Concomitant]
  7. VICODIN ES [Concomitant]
  8. XANAX [Concomitant]

REACTIONS (1)
  - HYPOACUSIS [None]
